FAERS Safety Report 9176536 (Version 1)
Quarter: 2013Q1

REPORT INFORMATION
  Report Type: Spontaneous
  Country: US (occurrence: None)
  Receive Date: 20130320
  Receipt Date: 20130320
  Transmission Date: 20140127
  Serious: Yes (Life-Threatening, Hospitalization)
  Sender: FDA-Public Use
  Company Number: None

PATIENT
  Age: 59 Year
  Sex: Male
  Weight: 74 kg

DRUGS (1)
  1. SAMSCA 30 MG OTSUKA [Suspect]
     Indication: HYPONATRAEMIA
     Route: 048
     Dates: start: 20130315, end: 20130315

REACTIONS (2)
  - Unresponsive to stimuli [None]
  - Encephalopathy [None]
